FAERS Safety Report 24350404 (Version 1)
Quarter: 2024Q3

REPORT INFORMATION
  Report Type: Spontaneous
  Country: US (occurrence: US)
  Receive Date: 20240923
  Receipt Date: 20240923
  Transmission Date: 20241016
  Serious: No
  Sender: AUROBINDO
  Company Number: US-AUROBINDO-AUR-APL-2024-038214

PATIENT
  Age: 49 Year
  Sex: Male
  Weight: 117.9 kg

DRUGS (1)
  1. LENALIDOMIDE [Suspect]
     Active Substance: LENALIDOMIDE
     Indication: Plasma cell myeloma
     Dosage: UNK, CYCLICAL (DAYS 1-21 OF A 28 DAY CYCLE )
     Route: 065

REACTIONS (2)
  - Disease progression [Unknown]
  - Therapy change [Unknown]
